FAERS Safety Report 15709305 (Version 1)
Quarter: 2018Q4

REPORT INFORMATION
  Report Type: Spontaneous
  Country: TW (occurrence: TW)
  Receive Date: 20181211
  Receipt Date: 20181211
  Transmission Date: 20190205
  Serious: Yes (Hospitalization)
  Sender: FDA-Public Use
  Company Number: TW-BAYER-2018-228476

PATIENT
  Age: 65 Year
  Sex: Female

DRUGS (1)
  1. GADOVIST [Suspect]
     Active Substance: GADOBUTROL
     Dosage: 15 ML, ONCE
     Route: 042
     Dates: start: 20181204, end: 20181204

REACTIONS (5)
  - Dyspnoea [None]
  - Dizziness [None]
  - Generalised erythema [None]
  - Rash [None]
  - Speech disorder [None]

NARRATIVE: CASE EVENT DATE: 20181204
